FAERS Safety Report 19094936 (Version 1)
Quarter: 2021Q2

REPORT INFORMATION
  Report Type: Report from Study
  Country: FR (occurrence: FR)
  Receive Date: 20210405
  Receipt Date: 20210405
  Transmission Date: 20210717
  Serious: Yes (Other)
  Sender: FDA-Public Use
  Company Number: FR-US-PROVELL PHARMACEUTICALS LLC-9228689

PATIENT
  Sex: Female

DRUGS (1)
  1. LEVOTHYROX 100 [Suspect]
     Active Substance: LEVOTHYROXINE SODIUM
     Indication: POST PROCEDURAL HYPOTHYROIDISM
     Dates: start: 2006

REACTIONS (7)
  - Ovarian cyst [Unknown]
  - Self esteem decreased [Unknown]
  - Rotator cuff repair [Unknown]
  - Fatigue [Unknown]
  - Arthralgia [Unknown]
  - Vocal cord operation [Unknown]
  - Skin disorder [Unknown]
